FAERS Safety Report 24549622 (Version 1)
Quarter: 2024Q4

REPORT INFORMATION
  Report Type: Spontaneous
  Country: DE (occurrence: DE)
  Receive Date: 20241025
  Receipt Date: 20241025
  Transmission Date: 20250114
  Serious: Yes (Other)
  Sender: THEA PHARMA INC.
  Company Number: DE-THEA-2024002384

PATIENT
  Sex: Male

DRUGS (2)
  1. LATANOPROST\TIMOLOL MALEATE [Suspect]
     Active Substance: LATANOPROST\TIMOLOL MALEATE
     Indication: Product used for unknown indication
     Dosage: 1 DROP DAILY IN THE EVENING SINCE 4 YEAR PRIOR
     Route: 047
  2. LATANOPROST [Suspect]
     Active Substance: LATANOPROST
     Indication: Product used for unknown indication
     Dosage: SINCE 1 YEAR PRIOR
     Route: 047

REACTIONS (1)
  - Myocardial infarction [Unknown]
